FAERS Safety Report 18275933 (Version 1)
Quarter: 2020Q3

REPORT INFORMATION
  Report Type: Spontaneous
  Country: FR (occurrence: FR)
  Receive Date: 20200917
  Receipt Date: 20200917
  Transmission Date: 20201103
  Serious: Yes (Other)
  Sender: FDA-Public Use
  Company Number: FR-REGENERON PHARMACEUTICALS, INC.-2020-76550

PATIENT

DRUGS (2)
  1. EYLEA [Suspect]
     Active Substance: AFLIBERCEPT
     Indication: MACULAR OEDEMA
     Dosage: 1 DF, ONCE; RIGHT EYE
     Route: 031
     Dates: start: 20200828, end: 20200828
  2. EYLEA [Concomitant]
     Active Substance: AFLIBERCEPT
     Indication: MACULAR OEDEMA

REACTIONS (2)
  - Device mechanical issue [Unknown]
  - Ocular hypertension [Unknown]

NARRATIVE: CASE EVENT DATE: 20200828
